FAERS Safety Report 5877822-3 (Version None)
Quarter: 2008Q3

REPORT INFORMATION
  Report Type: 
  Country: None (occurrence: None)
  Receive Date: 20080911
  Receipt Date: 20080903
  Transmission Date: 20090109
  Serious: Yes (Other)
  Sender: FDA-Public Use
  Company Number: US-BAYER-200832629NA

PATIENT
  Sex: Male

DRUGS (1)
  1. AVELOX [Suspect]
     Indication: URINARY TRACT INFECTION
     Dates: start: 20061101, end: 20061101

REACTIONS (4)
  - DIARRHOEA [None]
  - INFECTIOUS MONONUCLEOSIS [None]
  - KOEBNER PHENOMENON [None]
  - LICHEN PLANUS [None]
